FAERS Safety Report 21965472 (Version 1)
Quarter: 2023Q1

REPORT INFORMATION
  Report Type: Spontaneous
  Country: HR (occurrence: HR)
  Receive Date: 20230208
  Receipt Date: 20230208
  Transmission Date: 20230418
  Serious: Yes (Other)
  Sender: FDA-Public Use
  Company Number: None

PATIENT
  Sex: Male

DRUGS (2)
  1. ZOLPIDEM TARTRATE [Suspect]
     Active Substance: ZOLPIDEM TARTRATE
     Indication: Product used for unknown indication
     Dosage: 20 DOSAGE FORM, QD (1 DF = 1 TABLETA) (ADR IS ADEQUATELY LABELLED: SOMNOLENCE ADR IS NOT ADEQUATELY
     Route: 048
     Dates: start: 20221223, end: 20221223
  2. NORMABEL [Suspect]
     Active Substance: DIAZEPAM
     Indication: Product used for unknown indication
     Dosage: 300 MG,QD (ADR IS ADEQUATELY LABELLED: SOMNOLENCE ADR IS NOT ADEQUATELY LABELLED: SLUGGISHNESS, THIN
     Route: 048
     Dates: start: 20221223, end: 20221223

REACTIONS (5)
  - Sluggishness [Unknown]
  - Suicide attempt [Unknown]
  - Bradyphrenia [Unknown]
  - Somnolence [Unknown]
  - Intentional overdose [Unknown]

NARRATIVE: CASE EVENT DATE: 20221223
